FAERS Safety Report 4415896-7 (Version None)
Quarter: 2004Q3

REPORT INFORMATION
  Report Type: 
  Country: None (occurrence: None)
  Receive Date: 20040805
  Receipt Date: 20040510
  Transmission Date: 20050211
  Serious: No
  Sender: FDA-Public Use
  Company Number: US-GLAXOSMITHKLINE-A0510228A

PATIENT
  Age: 79 Year
  Sex: Female

DRUGS (5)
  1. AVANDAMET [Suspect]
     Route: 048
     Dates: start: 20040315
  2. AMARYL [Concomitant]
  3. UNKNOWN MEDICATION [Concomitant]
  4. INSULIN [Concomitant]
  5. MOBICOX [Concomitant]

REACTIONS (1)
  - ARTHRITIS [None]
